FAERS Safety Report 6089087-0 (Version None)
Quarter: 2009Q1

REPORT INFORMATION
  Report Type: 
  Country: None (occurrence: None)
  Receive Date: 20090219
  Receipt Date: 20090204
  Transmission Date: 20090719
  Serious: Yes (Hospitalization, Other)
  Sender: FDA-Public Use
  Company Number: ENT 2009-0004

PATIENT
  Age: 73 Year
  Sex: Female

DRUGS (10)
  1. COMTAN [Suspect]
     Indication: DRUG EFFECT DECREASED
     Dosage: 400 MG ORAL
     Route: 048
     Dates: start: 20081203, end: 20081220
  2. SYMMETREL [Suspect]
     Indication: DRUG EFFECT DECREASED
     Dosage: 150 MG ORAL
     Route: 048
     Dates: start: 20070313
  3. LEVODOPA [Suspect]
     Dosage: 400 MG ORAL
     Route: 048
  4. REQUIP [Suspect]
     Indication: DRUG EFFECT DECREASED
     Dosage: 3 MG ORAL
     Route: 048
     Dates: start: 20060909
  5. EXCEGRAN [Suspect]
     Indication: DRUG EFFECT DECREASED
     Dosage: 50 MG ORAL
     Route: 048
     Dates: start: 20070313
  6. FP-OD [Suspect]
     Indication: DRUG EFFECT DECREASED
     Dosage: 5 MG DAY ORAL
     Route: 048
     Dates: start: 20070911
  7. MADOPAR [Suspect]
     Indication: DRUG EFFECT DECREASED
     Dosage: 400 MG DAY ORAL
     Route: 048
     Dates: start: 20071005
  8. GRIMAC [Concomitant]
  9. COMELIAN [Concomitant]
  10. SODIUM PICOSULFATE [Concomitant]

REACTIONS (6)
  - DELUSION [None]
  - FALL [None]
  - FEMUR FRACTURE [None]
  - HALLUCINATION [None]
  - LEUKOPENIA [None]
  - OVERDOSE [None]
